FAERS Safety Report 5702440-7 (Version None)
Quarter: 2008Q2

REPORT INFORMATION
  Report Type: 
  Country: None (occurrence: None)
  Receive Date: 20080411
  Receipt Date: 20071008
  Transmission Date: 20081010
  Serious: No
  Sender: FDA-Public Use
  Company Number: US-ASTRAZENECA-2007UW23363

PATIENT
  Sex: Female

DRUGS (1)
  1. ZESTORETIC [Suspect]
     Route: 048

REACTIONS (1)
  - BLOOD PRESSURE INCREASED [None]
